FAERS Safety Report 9606887 (Version 2)
Quarter: 2013Q4

REPORT INFORMATION
  Report Type: Spontaneous
  Country: US (occurrence: US)
  Receive Date: 20131008
  Receipt Date: 20131008
  Transmission Date: 20140711
  Serious: No
  Sender: FDA-Public Use
  Company Number: US-AMGEN-USASP2013047971

PATIENT
  Age: 66 Year
  Sex: Female

DRUGS (6)
  1. PROLIA [Suspect]
     Indication: OSTEOPOROSIS POSTMENOPAUSAL
     Dosage: UNK
     Route: 065
     Dates: start: 201303
  2. PREDNISONE [Concomitant]
     Indication: RHEUMATOID ARTHRITIS
     Route: 065
  3. FOLIC ACID [Concomitant]
     Route: 065
  4. NEXIUM                             /01479302/ [Concomitant]
     Route: 065
  5. HUMIRA [Concomitant]
     Route: 065
  6. IMURAN                             /00001501/ [Concomitant]
     Route: 065

REACTIONS (11)
  - Tendonitis [Unknown]
  - Tendon injury [Unknown]
  - Abasia [Unknown]
  - Arthralgia [Recovered/Resolved]
  - Sensory disturbance [Unknown]
  - Headache [Not Recovered/Not Resolved]
  - Tinnitus [Not Recovered/Not Resolved]
  - Back pain [Recovered/Resolved]
  - Local swelling [Unknown]
  - Pain [Recovered/Resolved]
  - Pain in extremity [Recovered/Resolved]
